FAERS Safety Report 15844700 (Version 2)
Quarter: 2019Q1

REPORT INFORMATION
  Report Type: Spontaneous
  Country: JP (occurrence: JP)
  Receive Date: 20190118
  Receipt Date: 20190206
  Transmission Date: 20190417
  Serious: Yes (Hospitalization)
  Sender: FDA-Public Use
  Company Number: PHJP2019JP000839

PATIENT
  Age: 75 Year
  Sex: Male

DRUGS (1)
  1. NEORAL [Suspect]
     Active Substance: CYCLOSPORINE
     Indication: NEPHROTIC SYNDROME
     Dosage: 100 MG, QD
     Route: 048
     Dates: start: 201403

REACTIONS (2)
  - Lung neoplasm malignant [Unknown]
  - Colon cancer [Recovering/Resolving]

NARRATIVE: CASE EVENT DATE: 201811
